FAERS Safety Report 6689151-9 (Version None)
Quarter: 2010Q2

REPORT INFORMATION
  Report Type: 
  Country: None (occurrence: None)
  Receive Date: 20100415
  Receipt Date: 20100409
  Transmission Date: 20101027
  Serious: Yes (Hospitalization)
  Sender: FDA-Public Use
  Company Number: 2010SP020788

PATIENT
  Age: 51 Year
  Sex: Male
  Weight: 78 kg

DRUGS (4)
  1. PEG-INTRON [Suspect]
     Indication: HEPATITIS C
     Dosage: 120 MCG; QW; SC
     Route: 058
     Dates: start: 20091210, end: 20091219
  2. RIBAVIRIN [Suspect]
     Indication: HEPATITIS C
     Dosage: 1200 MG; QD;PO
     Route: 048
     Dates: start: 20091210, end: 20091219
  3. CALCIUM [Concomitant]
  4. ZYRTEC [Concomitant]

REACTIONS (3)
  - ANXIETY [None]
  - GENERAL PHYSICAL HEALTH DETERIORATION [None]
  - HAEMATOLOGY TEST ABNORMAL [None]
